FAERS Safety Report 9529196 (Version 1)
Quarter: 2013Q2

REPORT INFORMATION
  Report Type: Spontaneous
  Country: US (occurrence: None)
  Receive Date: 20130401
  Receipt Date: 20130401
  Transmission Date: 20140414
  Serious: Yes (Other)
  Sender: FDA-Public Use
  Company Number: PHEH2013US001444

PATIENT
  Age: 83 Year
  Sex: Male

DRUGS (9)
  1. EXELON PATCH [Suspect]
     Dosage: 4.6 MG, UNK, TRANSDERMAL
     Route: 062
     Dates: start: 201211
  2. COREG (CARVEDILOL) [Concomitant]
  3. SIMVASTATIN (SIMVASTATIN) [Concomitant]
  4. BABY ASPIRIN (ACETYLSALICYCIC ACID) [Concomitant]
  5. FISH OIL (FISH OIL) [Concomitant]
  6. MULTIVITAMIN (VITAMINS NOS) [Concomitant]
  7. VITAMIN B (VITAMIN B COMPLEX) [Concomitant]
  8. VITAMIN C [Concomitant]
  9. VITAMIN D (ERGOCALCIFEROL) [Concomitant]

REACTIONS (2)
  - Dyspnoea [None]
  - Feeling abnormal [None]
